FAERS Safety Report 17362007 (Version 3)
Quarter: 2020Q1

REPORT INFORMATION
  Report Type: Report from Study
  Country: CA (occurrence: CA)
  Receive Date: 20200203
  Receipt Date: 20200214
  Transmission Date: 20200409
  Serious: Yes (Life-Threatening, Hospitalization, Other)
  Sender: FDA-Public Use
  Company Number: CA-BRISTOL-MYERS SQUIBB COMPANY-BMS-2020-008592

PATIENT
  Age: 11 Year
  Sex: Male
  Weight: 33.8 kg

DRUGS (62)
  1. HYDROCORTISONE. [Concomitant]
     Active Substance: HYDROCORTISONE
     Indication: PRODUCT USED FOR UNKNOWN INDICATION
     Dosage: 100 MILLIGRAM, QD STAT
     Route: 042
     Dates: start: 20200130, end: 20200130
  2. HYDROCORTISONE. [Concomitant]
     Active Substance: HYDROCORTISONE
     Indication: PRODUCT USED FOR UNKNOWN INDICATION
     Dosage: 16 MILLIGRAM, Q6H
     Route: 042
     Dates: start: 20200202
  3. OMEPRAZOLE. [Concomitant]
     Active Substance: OMEPRAZOLE
     Indication: PRODUCT USED FOR UNKNOWN INDICATION
     Dosage: 35 MG: 10 ML
     Route: 042
     Dates: start: 20200202
  4. DEXAMETHASONE. [Concomitant]
     Active Substance: DEXAMETHASONE
     Indication: PRODUCT USED FOR UNKNOWN INDICATION
     Dosage: 4 MILLIGRAM, BID
     Route: 042
     Dates: start: 20200201, end: 20200201
  5. DEXAMETHASONE. [Concomitant]
     Active Substance: DEXAMETHASONE
     Indication: PRODUCT USED FOR UNKNOWN INDICATION
     Dosage: 4 MG: 0 ML
     Route: 042
     Dates: start: 20200131, end: 20200202
  6. METARAMINOL [Concomitant]
     Active Substance: METARAMINOL
     Indication: BLOOD PRESSURE MEASUREMENT
     Dosage: 0.75 MILLIGRAM STAT
     Route: 042
     Dates: start: 20200130, end: 20200130
  7. ONDANSETRON [Concomitant]
     Active Substance: ONDANSETRON
     Indication: NAUSEA
     Dosage: 2 MILLIGRAM STAT
     Route: 042
     Dates: start: 20200130, end: 20200130
  8. MORPHINE [Concomitant]
     Active Substance: MORPHINE
     Indication: INTRACRANIAL TUMOUR HAEMORRHAGE
     Dosage: 30 MG IN 30 ML
     Route: 042
     Dates: start: 20200131
  9. HYDROCORTISONE. [Concomitant]
     Active Substance: HYDROCORTISONE
     Indication: ADRENOCORTICAL CARCINOMA
     Dosage: 4 MILLIGRAM, QID
     Route: 048
     Dates: start: 201807
  10. HYDROCORTISONE. [Concomitant]
     Active Substance: HYDROCORTISONE
     Indication: STRESS
     Dosage: 12 MILLIGRAM, QID
     Route: 048
  11. AMLODIPINE [Concomitant]
     Active Substance: AMLODIPINE BESYLATE
     Indication: HYPERTENSION
     Dosage: 10 MILLIGRAM, QD
     Route: 048
     Dates: start: 201807
  12. DEXAMETHASONE. [Concomitant]
     Active Substance: DEXAMETHASONE
     Indication: PRODUCT USED FOR UNKNOWN INDICATION
     Dosage: 2 MILLIGRAM, BID NGT
     Route: 065
     Dates: start: 20200204
  13. GRANISETRON [Concomitant]
     Active Substance: GRANISETRON
     Indication: NAUSEA
     Dosage: 2 MILLIGRAM, BID, PRN
     Route: 048
     Dates: start: 20200201
  14. NORADRENALINE [NOREPINEPHRINE] [Concomitant]
     Active Substance: NOREPINEPHRINE
     Indication: PRODUCT USED FOR UNKNOWN INDICATION
     Dosage: 1 MG IN 50 ML, CENTRAL VENOUS LINE
     Route: 065
     Dates: start: 20200131
  15. NIVOLUMAB [Suspect]
     Active Substance: NIVOLUMAB
     Indication: ADRENOCORTICAL CARCINOMA
     Dosage: 3 MILLIGRAM/KILOGRAM, Q2WK
     Route: 042
     Dates: start: 20200122
  16. THYROXINE [Concomitant]
     Active Substance: LEVOTHYROXINE
     Indication: PRODUCT USED FOR UNKNOWN INDICATION
     Dosage: 100 MICROGRAM NGT SATURDAY - SUNDAY
     Route: 065
     Dates: start: 20200201
  17. OMEPRAZOLE. [Concomitant]
     Active Substance: OMEPRAZOLE
     Indication: GASTROOESOPHAGEAL REFLUX DISEASE
     Dosage: 20 MILLIGRAM, QD
     Route: 048
     Dates: start: 201807
  18. DEXAMETHASONE. [Concomitant]
     Active Substance: DEXAMETHASONE
     Indication: BRAIN OEDEMA
     Dosage: 4 MILLIGRAM TDS
     Route: 042
     Dates: start: 20200130, end: 20200130
  19. DEXAMETHASONE. [Concomitant]
     Active Substance: DEXAMETHASONE
     Indication: PRODUCT USED FOR UNKNOWN INDICATION
     Dosage: 2 MILLIGRAM NGT TDS
     Route: 065
     Dates: start: 20200203, end: 20200203
  20. SODIUM PHOSPHATE [Concomitant]
     Active Substance: SODIUM PHOSPHATE
     Indication: BLOOD PHOSPHORUS DECREASED
     Dosage: 250 MILLIGRAM TDS
     Route: 048
     Dates: start: 20200203
  21. GLUCOSE [Concomitant]
     Active Substance: DEXTROSE
     Indication: INTRACRANIAL TUMOUR HAEMORRHAGE
     Dosage: 60 ML/HR AND 30 ML/HR
     Route: 042
     Dates: start: 20200131
  22. NORADRENALINE [NOREPINEPHRINE] [Concomitant]
     Active Substance: NOREPINEPHRINE
     Indication: INTRACRANIAL TUMOUR HAEMORRHAGE
     Dosage: 4 MILLIGRAM IN 50 ML, CENTRAL VENOUS LINE
     Route: 065
     Dates: start: 20200131
  23. LEVOTHYROXINE. [Concomitant]
     Active Substance: LEVOTHYROXINE
     Indication: PRODUCT USED FOR UNKNOWN INDICATION
     Dosage: 50 MICROGRAM, QD
     Route: 065
     Dates: start: 20200131, end: 20200203
  24. HYDROCORTISONE. [Concomitant]
     Active Substance: HYDROCORTISONE
     Indication: PRODUCT USED FOR UNKNOWN INDICATION
     Dosage: 8 MILLIGRAM, QID
     Route: 048
  25. HYDROCORTISONE. [Concomitant]
     Active Substance: HYDROCORTISONE
     Indication: PRODUCT USED FOR UNKNOWN INDICATION
     Dosage: 16 MG:0 ML
     Route: 042
     Dates: start: 20200203
  26. OMEPRAZOLE. [Concomitant]
     Active Substance: OMEPRAZOLE
     Indication: PRODUCT USED FOR UNKNOWN INDICATION
     Dosage: 35 MG: 0 ML
     Route: 042
     Dates: start: 20200203
  27. CEFTRIAXONE. [Concomitant]
     Active Substance: CEFTRIAXONE
     Indication: FEBRILE NEUTROPENIA
     Dosage: 3380 MILLIGRAM, QD
     Route: 042
     Dates: start: 20200205
  28. MORPHINE [Concomitant]
     Active Substance: MORPHINE
     Indication: PRODUCT USED FOR UNKNOWN INDICATION
     Dosage: 30 MG:50 ML
     Route: 042
     Dates: start: 20200131
  29. MORPHINE [Concomitant]
     Active Substance: MORPHINE
     Indication: PRODUCT USED FOR UNKNOWN INDICATION
     Dosage: 5 MG: 50 ML
     Route: 042
     Dates: start: 20200131
  30. HYDROCORTISONE. [Concomitant]
     Active Substance: HYDROCORTISONE
     Indication: PRODUCT USED FOR UNKNOWN INDICATION
     Dosage: 16 MG:2 ML
     Route: 042
     Dates: start: 20200202
  31. THYROXINE [Concomitant]
     Active Substance: LEVOTHYROXINE
     Indication: PRODUCT USED FOR UNKNOWN INDICATION
     Dosage: 50 MICROGRAM NGT MONDAY - FRIDAY
     Route: 065
     Dates: start: 20200203
  32. OMEPRAZOLE. [Concomitant]
     Active Substance: OMEPRAZOLE
     Indication: PRODUCT USED FOR UNKNOWN INDICATION
     Dosage: 35 MG: 9 ML
     Route: 042
     Dates: start: 20200201
  33. CALCIUM CHLORIDE. [Concomitant]
     Active Substance: CALCIUM CHLORIDE
     Indication: HYPOKALAEMIA
     Dosage: 3.4 MMOL/L,STAT
     Route: 042
     Dates: start: 20200130, end: 20200130
  34. ROCURONIUM [Concomitant]
     Active Substance: ROCURONIUM BROMIDE
     Indication: ANALGESIC THERAPY
     Dosage: 50 MILLIGRAM STAT
     Route: 042
     Dates: start: 20200130, end: 20200130
  35. REMIFENTANIL [Concomitant]
     Active Substance: REMIFENTANIL
     Indication: PAIN
     Dosage: 2000 MICROGRAM
     Route: 065
     Dates: start: 20200130
  36. SODIUM CHLORIDE. [Concomitant]
     Active Substance: SODIUM CHLORIDE
     Indication: PAIN
     Dosage: 40 MILLILITER
     Route: 065
     Dates: start: 20200130
  37. CAPTOPRIL. [Concomitant]
     Active Substance: CAPTOPRIL
     Indication: HYPERTENSION
     Dosage: 25 MILLIGRAM, BID
     Route: 048
     Dates: start: 201807
  38. FLUDROCORTISONE [Concomitant]
     Active Substance: FLUDROCORTISONE
     Indication: ADRENOCORTICAL CARCINOMA
     Dosage: 1 TAB, QD
     Route: 065
     Dates: start: 201812
  39. DEXAMETHASONE. [Concomitant]
     Active Substance: DEXAMETHASONE
     Indication: PRODUCT USED FOR UNKNOWN INDICATION
     Dosage: 4 MG: 3 ML
     Route: 042
     Dates: start: 20200131, end: 20200201
  40. GABAPENTIN. [Concomitant]
     Active Substance: GABAPENTIN
     Indication: NEURALGIA
     Dosage: 100 MILLIGRAM, BID
     Route: 048
     Dates: start: 20200204
  41. ACTRAPID [Concomitant]
     Active Substance: INSULIN HUMAN
     Indication: PRODUCT USED FOR UNKNOWN INDICATION
     Dosage: 3 INTERNATIONAL UNIT STAT
     Route: 042
     Dates: start: 20200130, end: 20200130
  42. ONDANSETRON [Concomitant]
     Active Substance: ONDANSETRON
     Indication: PRODUCT USED FOR UNKNOWN INDICATION
     Dosage: 4 MILLIGRAM TDS PRN
     Route: 042
     Dates: start: 20200130, end: 20200130
  43. PROPOFOL. [Concomitant]
     Active Substance: PROPOFOL
     Indication: ANAESTHESIA
     Dosage: 50 MILLIGRAM STAT
     Route: 042
     Dates: start: 20200130, end: 20200130
  44. MACROGOL 3350 [Concomitant]
     Active Substance: POLYETHYLENE GLYCOL 3350
     Indication: CONSTIPATION
     Dosage: 1 SACHET NGT PRN
     Route: 065
     Dates: start: 20200201
  45. SODIUM CHLORIDE. [Concomitant]
     Active Substance: SODIUM CHLORIDE
     Indication: PRODUCT USED FOR UNKNOWN INDICATION
     Dosage: 30 MILLILITER, QH
     Route: 042
     Dates: start: 20200201
  46. NORADRENALINE [NOREPINEPHRINE] [Concomitant]
     Active Substance: NOREPINEPHRINE
     Indication: PRODUCT USED FOR UNKNOWN INDICATION
     Dosage: 1 MG:50 ML
     Route: 065
     Dates: start: 20200131
  47. PROPOFOL. [Concomitant]
     Active Substance: PROPOFOL
     Indication: INTRACRANIAL TUMOUR HAEMORRHAGE
     Dosage: 500 MG: 50 ML
     Route: 042
     Dates: start: 20200131
  48. LEVOTHYROXINE. [Concomitant]
     Active Substance: LEVOTHYROXINE
     Indication: HYPOTHYROIDISM
     Dosage: 100 MICROGRAM, QD
     Route: 048
     Dates: start: 20200201
  49. HYDROCORTISONE. [Concomitant]
     Active Substance: HYDROCORTISONE
     Indication: PRODUCT USED FOR UNKNOWN INDICATION
     Dosage: 10 MILLIGRAM, QID
     Route: 048
  50. SODIUM CHLORIDE. [Concomitant]
     Active Substance: SODIUM CHLORIDE
     Indication: PRODUCT USED FOR UNKNOWN INDICATION
     Dosage: 100 MILLILITER, QH
     Route: 042
     Dates: start: 20200201
  51. SODIUM CHLORIDE. [Concomitant]
     Active Substance: SODIUM CHLORIDE
     Indication: PRODUCT USED FOR UNKNOWN INDICATION
     Dosage: 60 ML/HR AND 30 ML/HR
     Route: 042
     Dates: start: 20200131
  52. HYDROCORTISONE. [Concomitant]
     Active Substance: HYDROCORTISONE
     Indication: PRODUCT USED FOR UNKNOWN INDICATION
     Dosage: 100 MILLIGRAM, STAT
     Route: 065
     Dates: start: 20200114
  53. HYDROCORTISONE. [Concomitant]
     Active Substance: HYDROCORTISONE
     Indication: PRODUCT USED FOR UNKNOWN INDICATION
     Dosage: 16 MILLIGRAM, QD
     Route: 042
     Dates: start: 20200202
  54. THYROXINE [Concomitant]
     Active Substance: LEVOTHYROXINE
     Indication: HYPOTHYROIDISM
     Dosage: 50 MICROGRAM, QD
     Route: 048
     Dates: start: 201812
  55. OMEPRAZOLE. [Concomitant]
     Active Substance: OMEPRAZOLE
     Indication: PRODUCT USED FOR UNKNOWN INDICATION
     Dosage: 35 MILLIGRAM, QD
     Route: 042
     Dates: start: 20200131
  56. OMEPRAZOLE. [Concomitant]
     Active Substance: OMEPRAZOLE
     Indication: PRODUCT USED FOR UNKNOWN INDICATION
     Dosage: 35 MG: 5 ML
     Route: 042
     Dates: start: 20200131
  57. CEFAZOLIN [Concomitant]
     Active Substance: CEFAZOLIN
     Indication: INFECTION PROPHYLAXIS
     Dosage: 1 GRAM STAT
     Route: 042
     Dates: start: 20200130, end: 20200130
  58. FENTANYL. [Concomitant]
     Active Substance: FENTANYL
     Indication: ANALGESIC THERAPY
     Dosage: 90 MICROGRAM STAT
     Route: 042
     Dates: start: 20200130, end: 20200130
  59. METARAMINOL [Concomitant]
     Active Substance: METARAMINOL
     Indication: PRODUCT USED FOR UNKNOWN INDICATION
     Dosage: 10 MILLIGRAM, STAT
     Route: 042
     Dates: start: 20200130, end: 20200130
  60. OXYCODONE [Concomitant]
     Active Substance: OXYCODONE
     Indication: PAIN
     Dosage: 2 MILLIGRAM, Q4H NGT PRN
     Route: 065
     Dates: start: 20200203
  61. SODIUM CHLORIDE. [Concomitant]
     Active Substance: SODIUM CHLORIDE
     Indication: PRODUCT USED FOR UNKNOWN INDICATION
     Dosage: 340 MILLILITER, QD
     Route: 042
     Dates: start: 20200131
  62. MORPHINE [Concomitant]
     Active Substance: MORPHINE
     Indication: PRODUCT USED FOR UNKNOWN INDICATION
     Dosage: 5 MG IN 50 ML
     Route: 042
     Dates: start: 20200131

REACTIONS (1)
  - Intracranial tumour haemorrhage [Unknown]

NARRATIVE: CASE EVENT DATE: 20200130
